FAERS Safety Report 7871698-0 (Version None)
Quarter: 2011Q4

REPORT INFORMATION
  Report Type: 
  Country: None (occurrence: None)
  Receive Date: 20111029
  Receipt Date: 20110307
  Transmission Date: 20120403
  Serious: No
  Sender: FDA-Public Use
  Company Number: US-AMGEN-USASP2011009688

PATIENT
  Age: 31 Year
  Sex: Male

DRUGS (8)
  1. ENBREL [Suspect]
     Indication: HIDRADENITIS
  2. ENBREL [Suspect]
     Indication: PSORIASIS
     Dosage: 50 MG, 2 TIMES/WK
     Route: 058
     Dates: start: 20110215
  3. CLOBETASOL [Concomitant]
     Dosage: UNK
     Dates: start: 20110131
  4. VECTICAL [Concomitant]
     Dosage: UNK
     Dates: start: 20110131, end: 20110215
  5. TRIAMCINOLONE [Concomitant]
     Dosage: UNK
     Dates: start: 20110131
  6. LEXAPRO [Concomitant]
     Dosage: 10 MG, UNK
     Dates: start: 20101201
  7. PROBIOTICA [Concomitant]
     Dosage: UNK
     Dates: start: 20100301
  8. MULTIVITAMIN                       /00097801/ [Concomitant]

REACTIONS (1)
  - PALPITATIONS [None]
